FAERS Safety Report 8175325-7 (Version None)
Quarter: 2012Q1

REPORT INFORMATION
  Report Type: 
  Country: None (occurrence: None)
  Receive Date: 20120229
  Receipt Date: 20120223
  Transmission Date: 20120608
  Serious: Yes (Hospitalization, Other)
  Sender: FDA-Public Use
  Company Number: CA-GENZYME-MOZO-1000667

PATIENT
  Sex: Female

DRUGS (5)
  1. BUSULFAN [Concomitant]
     Indication: BONE MARROW CONDITIONING REGIMEN
     Dosage: 3.2 MG/KG, QD
     Route: 065
  2. FLUDARA [Suspect]
     Indication: BONE MARROW CONDITIONING REGIMEN
     Dosage: 50 MG/M2, QD
     Route: 065
  3. TOTAL BODY IRRADIATION [Concomitant]
     Indication: BONE MARROW CONDITIONING REGIMEN
     Dosage: 400 UNK, UNK
     Route: 065
  4. MOZOBIL [Suspect]
     Indication: HAEMATOPOIETIC STEM CELL MOBILISATION
     Dosage: 0.24 MG/KG, UNK
     Route: 058
     Dates: start: 20100927
  5. MOZOBIL [Suspect]
     Indication: BONE MARROW CONDITIONING REGIMEN

REACTIONS (3)
  - ACUTE MYELOID LEUKAEMIA RECURRENT [None]
  - HAEMOPHILUS INFECTION [None]
  - PNEUMONIA [None]
